FAERS Safety Report 11652453 (Version 3)
Quarter: 2015Q4

REPORT INFORMATION
  Report Type: Spontaneous
  Country: JP (occurrence: JP)
  Receive Date: 20151022
  Receipt Date: 20151229
  Transmission Date: 20160304
  Serious: Yes (Hospitalization, Other)
  Sender: FDA-Public Use
  Company Number: JP-BRISTOL-MYERS SQUIBB COMPANY-BMS-2015-070543

PATIENT
  Age: 7 Decade
  Sex: Female

DRUGS (2)
  1. DAKLINZA [Suspect]
     Active Substance: DACLATASVIR
     Indication: CHRONIC HEPATITIS C
     Dosage: 60 MG, QD
     Route: 048
  2. SUNVEPRA [Suspect]
     Active Substance: ASUNAPREVIR
     Indication: CHRONIC HEPATITIS C
     Dosage: 100 MG, BID
     Route: 048

REACTIONS (7)
  - Fall [Unknown]
  - Thyroid function test abnormal [Unknown]
  - Altered state of consciousness [Not Recovered/Not Resolved]
  - Hypophosphataemia [Unknown]
  - Hypercalcaemia [Unknown]
  - Upper limb fracture [Unknown]
  - Blood albumin decreased [Unknown]
